FAERS Safety Report 6819980-X (Version None)
Quarter: 2010Q3

REPORT INFORMATION
  Report Type: 
  Country: None (occurrence: None)
  Receive Date: 20100707
  Receipt Date: 20100702
  Transmission Date: 20110219
  Serious: Yes (Hospitalization)
  Sender: FDA-Public Use
  Company Number: FR-ROCHE-713262

PATIENT
  Sex: Male

DRUGS (1)
  1. ROCEPHIN [Suspect]
     Indication: LYME DISEASE
     Dosage: ONE DOSE  FORM, ONCE DAILY; FORM: POWDER FOR SOLUTION FOR INFUSION
     Route: 042

REACTIONS (1)
  - CHOLELITHIASIS [None]
